FAERS Safety Report 16980854 (Version 1)
Quarter: 2019Q4

REPORT INFORMATION
  Report Type: Spontaneous
  Country: US (occurrence: US)
  Receive Date: 20191031
  Receipt Date: 20191031
  Transmission Date: 20200122
  Serious: No
  Sender: FDA-Public Use
  Company Number: US-FARMAPROD-201907-1150

PATIENT
  Age: 62 Year
  Sex: Female

DRUGS (2)
  1. OXERVATE [Suspect]
     Active Substance: CENEGERMIN-BKBJ
     Indication: HYPOAESTHESIA EYE
     Route: 047
     Dates: start: 20190624
  2. OXERVATE [Suspect]
     Active Substance: CENEGERMIN-BKBJ
     Indication: NEUROTROPHIC KERATOPATHY

REACTIONS (6)
  - Product quality issue [Unknown]
  - Product dose omission [Recovered/Resolved]
  - Eye pain [Unknown]
  - Eye irritation [Unknown]
  - Product administration error [Recovered/Resolved]
  - Product use issue [Recovered/Resolved]

NARRATIVE: CASE EVENT DATE: 20190722
